FAERS Safety Report 8791460 (Version 1)
Quarter: 2012Q4

REPORT INFORMATION
  Report Type: Spontaneous
  Country: US (occurrence: None)
  Receive Date: 20120914
  Receipt Date: 20120914
  Transmission Date: 20130627
  Serious: Yes (Death, Hospitalization)
  Sender: FDA-Public Use
  Company Number: None

PATIENT
  Age: 89 Year
  Sex: Male
  Weight: 67.13 kg

DRUGS (1)
  1. ZYCLARA [Suspect]
     Indication: SKIN CANCER
     Dosage: Small amount nightly outer nose
     Dates: start: 20101020, end: 20101103

REACTIONS (1)
  - Staphylococcal infection [None]
